FAERS Safety Report 13532550 (Version 1)
Quarter: 2017Q2

REPORT INFORMATION
  Report Type: Spontaneous
  Country: IT (occurrence: IT)
  Receive Date: 20170510
  Receipt Date: 20170510
  Transmission Date: 20170830
  Serious: Yes (Other)
  Sender: FDA-Public Use
  Company Number: IT-TEVA-766398ACC

PATIENT
  Sex: Female

DRUGS (1)
  1. MOXIFLOXACINA TEVA - 400 MG COMPRESSE RIVESTITE CON FILM [Suspect]
     Active Substance: MOXIFLOXACIN HYDROCHLORIDE
     Indication: PRODUCT USED FOR UNKNOWN INDICATION
     Dates: start: 20170421, end: 20170421

REACTIONS (4)
  - Dyspnoea [Unknown]
  - Laryngeal oedema [Unknown]
  - Pruritus [Unknown]
  - Flushing [Unknown]

NARRATIVE: CASE EVENT DATE: 20170421
